FAERS Safety Report 12893512 (Version 1)
Quarter: 2016Q4

REPORT INFORMATION
  Report Type: Spontaneous
  Country: FR (occurrence: FR)
  Receive Date: 20161028
  Receipt Date: 20161028
  Transmission Date: 20170207
  Serious: Yes (Other)
  Sender: FDA-Public Use
  Company Number: FR-TEVA-706427ROM

PATIENT
  Sex: Female

DRUGS (9)
  1. CALTRATE [Suspect]
     Active Substance: CALCIUM CARBONATE
     Dosage: 1 DOSAGE FORMS DAILY; 1 DOSAGE FORM DAILY, LONG TERM
     Route: 048
  2. ARTELAC 1.6 MG/0.5 ML EYE DROPS IN SINGLE CONTAINER [Suspect]
     Active Substance: HYPROMELLOSES
     Dosage: 3 GTT DAILY; 1 GTT TID, LONG TERM
     Route: 031
  3. UVEDOSE 100.000 IU, ORAL SOLUTION IN VIAL [Suspect]
     Active Substance: CHOLECALCIFEROL
     Dosage: 1 DOSAGE FORM EVERY 3 MONTHS, LONG TERM
     Route: 048
  4. XYZALL 5 MG/ML, ORAL SOLUTION IN DROPS [Suspect]
     Active Substance: LEVOCETIRIZINE DIHYDROCHLORIDE
     Dosage: LONG TERM
     Route: 048
  5. ACTONEL [Suspect]
     Active Substance: RISEDRONATE SODIUM
     Dosage: 1 TABLET PER DAY, 2 CONSECUTIVE DAYS PER MONTH, LONG TERM
     Route: 048
  6. TRAMADOL BASE [Suspect]
     Active Substance: TRAMADOL
     Route: 048
  7. PIASCLEDINE 300 MG [Suspect]
     Active Substance: AVOCADO OIL\SOYBEAN OIL
     Dosage: 1 DOSAGE FORMS DAILY; 1 DOSAGE FORM DAILY, LONG TERM
     Route: 048
  8. PARACETAMOL [Suspect]
     Active Substance: ACETAMINOPHEN
     Route: 048
  9. VPRIV [Suspect]
     Active Substance: VELAGLUCERASE ALFA
     Indication: GAUCHER^S DISEASE
     Route: 042
     Dates: start: 201110

REACTIONS (2)
  - Hepatic lesion [Not Recovered/Not Resolved]
  - Cholangiocarcinoma [Not Recovered/Not Resolved]

NARRATIVE: CASE EVENT DATE: 20160301
